FAERS Safety Report 7790189-9 (Version None)
Quarter: 2011Q3

REPORT INFORMATION
  Report Type: 
  Country: None (occurrence: None)
  Receive Date: 20110930
  Receipt Date: 20101217
  Transmission Date: 20111222
  Serious: No
  Sender: FDA-Public Use
  Company Number: US-ASTRAZENECA-2010SE59954

PATIENT

DRUGS (5)
  1. ACTOS [Concomitant]
  2. ARIMIDEX [Suspect]
     Route: 048
  3. ATENOLOL [Suspect]
     Route: 048
  4. DIOVAN [Concomitant]
     Dosage: 80/12.5 MG DAILY
  5. METFORMIN HCL [Concomitant]

REACTIONS (3)
  - DRUG HYPERSENSITIVITY [None]
  - PAIN IN EXTREMITY [None]
  - DYSPNOEA [None]
